FAERS Safety Report 7742612-3 (Version None)
Quarter: 2011Q3

REPORT INFORMATION
  Report Type: 
  Country: None (occurrence: None)
  Receive Date: 20110912
  Receipt Date: 20110908
  Transmission Date: 20111222
  Serious: Yes (Hospitalization, Other)
  Sender: FDA-Public Use
  Company Number: PHHY2011NZ80349

PATIENT
  Sex: Male

DRUGS (1)
  1. CLOZAPINE [Suspect]
     Indication: SCHIZOPHRENIA
     Dates: start: 20110630, end: 20110701

REACTIONS (3)
  - INFLUENZA LIKE ILLNESS [None]
  - MYOCARDITIS [None]
  - C-REACTIVE PROTEIN INCREASED [None]
